FAERS Safety Report 16877958 (Version 1)
Quarter: 2019Q4

REPORT INFORMATION
  Report Type: Spontaneous
  Country: JP (occurrence: JP)
  Receive Date: 20191002
  Receipt Date: 20191002
  Transmission Date: 20200122
  Serious: Yes (Hospitalization, Other)
  Sender: FDA-Public Use
  Company Number: JP-AMGEN-JPNSP2019160785

PATIENT
  Age: 89 Year
  Sex: Female

DRUGS (11)
  1. EDIROL [Concomitant]
     Active Substance: ELDECALCITOL
     Dosage: UNK
  2. CARVEDILOL. [Concomitant]
     Active Substance: CARVEDILOL
     Dosage: 10 MILLIGRAM, QD
  3. XARELTO [Concomitant]
     Active Substance: RIVAROXABAN
     Dosage: 10 MILLIGRAM, QD
  4. EVENITY [Suspect]
     Active Substance: ROMOSOZUMAB-AQQG
     Indication: OSTEOPOROSIS
     Dosage: 210 MILLIGRAM
     Route: 058
     Dates: start: 20190909
  5. MICAMLO [Concomitant]
     Active Substance: AMLODIPINE BESYLATE\TELMISARTAN
     Dosage: UNK
  6. LANSOPRAZOLE. [Concomitant]
     Active Substance: LANSOPRAZOLE
     Dosage: 30 MILLIGRAM, QD
  7. SAMSCA [Concomitant]
     Active Substance: TOLVAPTAN
     Dosage: 3.75 MILLIGRAM, QD
  8. TAMBOCOR [Concomitant]
     Active Substance: FLECAINIDE ACETATE
     Dosage: 50 MILLIGRAM, QD
  9. AMITIZA [Concomitant]
     Active Substance: LUBIPROSTONE
     Dosage: 24 MILLIGRAM, QD
  10. DIART [Concomitant]
     Active Substance: AZOSEMIDE
     Dosage: 30 MILLIGRAM, QD
  11. ADALAT [Concomitant]
     Active Substance: NIFEDIPINE
     Dosage: 50 MILLIGRAM

REACTIONS (2)
  - Cardiac failure [Unknown]
  - Renal failure [Unknown]

NARRATIVE: CASE EVENT DATE: 20190914
